FAERS Safety Report 6655084-7 (Version None)
Quarter: 2010Q1

REPORT INFORMATION
  Report Type: 
  Country: None (occurrence: None)
  Receive Date: 20100329
  Receipt Date: 20100315
  Transmission Date: 20100710
  Serious: Yes (Other)
  Sender: FDA-Public Use
  Company Number: IT-RANBAXY-2010RR-32667

PATIENT
  Age: 29 Year
  Sex: Female

DRUGS (1)
  1. TOPIRAMATE [Suspect]
     Indication: EPILEPSY
     Dosage: 200 MG, UNK

REACTIONS (9)
  - DEPRESSION [None]
  - GENERAL PHYSICAL CONDITION ABNORMAL [None]
  - GRANULOMA ANNULARE [None]
  - MUSCULAR WEAKNESS [None]
  - MYALGIA [None]
  - NO THERAPEUTIC RESPONSE [None]
  - POST INFLAMMATORY PIGMENTATION CHANGE [None]
  - PYREXIA [None]
  - WEIGHT DECREASED [None]
